FAERS Safety Report 9509706 (Version 1)
Quarter: 2013Q3

REPORT INFORMATION
  Report Type: Report from Study
  Country: US (occurrence: US)
  Receive Date: 20130909
  Receipt Date: 20130909
  Transmission Date: 20140515
  Serious: Yes (Other)
  Sender: FDA-Public Use
  Company Number: US-ROCHE-1267328

PATIENT
  Age: 71 Year
  Sex: Female

DRUGS (20)
  1. HERCEPTIN [Suspect]
     Indication: BREAST CANCER FEMALE
     Route: 065
  2. XELODA [Suspect]
     Indication: BREAST CANCER FEMALE
     Route: 065
  3. ALPRAZOLAM [Concomitant]
     Route: 065
  4. AMITRIPTYLINE [Concomitant]
     Route: 065
  5. CITALOPRAM [Concomitant]
     Route: 065
  6. GLUCOPHAGE XR [Concomitant]
     Route: 065
  7. PRAVACHOL [Concomitant]
     Route: 065
  8. PROMETHAZINE [Concomitant]
     Route: 065
  9. SYNTHROID [Concomitant]
     Route: 065
  10. VITAMIN B12 [Concomitant]
     Dosage: 1 U
     Route: 065
  11. VOLTAREN [Concomitant]
     Route: 065
  12. ZOFRAN [Concomitant]
     Route: 065
  13. ABRAXANE [Concomitant]
  14. TAXOTERE [Concomitant]
     Route: 065
     Dates: start: 20121003
  15. CARBOPLATIN [Concomitant]
  16. CYTOXAN [Concomitant]
     Route: 048
     Dates: start: 20121003
  17. METHOTREXATE [Concomitant]
     Route: 048
  18. COUMADIN [Concomitant]
     Route: 065
  19. DECADRON [Concomitant]
     Route: 065
  20. DECADRON [Concomitant]
     Route: 065

REACTIONS (8)
  - Metastases to liver [Unknown]
  - Metastases to central nervous system [Unknown]
  - Neutropenia [Unknown]
  - Cor pulmonale acute [Unknown]
  - Headache [Unknown]
  - Back pain [Unknown]
  - Pulmonary embolism [Unknown]
  - Faecal incontinence [Unknown]
